FAERS Safety Report 17237919 (Version 1)
Quarter: 2020Q1

REPORT INFORMATION
  Report Type: Spontaneous
  Country: US (occurrence: US)
  Receive Date: 20200106
  Receipt Date: 20200106
  Transmission Date: 20200409
  Serious: Yes (Other)
  Sender: FDA-Public Use
  Company Number: US-ASTRAZENECA-2020SE01581

PATIENT
  Sex: Male
  Weight: 7.7 kg

DRUGS (4)
  1. ALBUTEROL SULFATE. [Concomitant]
     Active Substance: ALBUTEROL SULFATE
  2. PULMICORT TURBUHALER [Concomitant]
     Active Substance: BUDESONIDE
  3. PREDNISONE. [Concomitant]
     Active Substance: PREDNISONE
  4. SYNAGIS [Suspect]
     Active Substance: PALIVIZUMAB
     Indication: PREMATURE BABY
     Route: 030

REACTIONS (2)
  - Bronchitis [Unknown]
  - Asthma [Unknown]
